FAERS Safety Report 14996128 (Version 2)
Quarter: 2018Q4

REPORT INFORMATION
  Report Type: Spontaneous
  Country: US (occurrence: US)
  Receive Date: 20180611
  Receipt Date: 20181115
  Transmission Date: 20190204
  Serious: Yes (Death, Hospitalization)
  Sender: FDA-Public Use
  Company Number: US-PFIZER INC-2018234936

PATIENT
  Age: 61 Year
  Sex: Female
  Weight: 92.99 kg

DRUGS (1)
  1. IBRANCE [Suspect]
     Active Substance: PALBOCICLIB
     Indication: BREAST CANCER STAGE IV
     Dosage: 125 MG, 1X/DAY, FOR 21 DAYS AND OFF FOR 7 DAYS
     Dates: start: 201805

REACTIONS (3)
  - Urinary tract infection [Unknown]
  - Death [Fatal]
  - Blood potassium increased [Recovered/Resolved]

NARRATIVE: CASE EVENT DATE: 201805
